FAERS Safety Report 22019244 (Version 2)
Quarter: 2023Q1

REPORT INFORMATION
  Report Type: Spontaneous
  Country: US (occurrence: US)
  Receive Date: 20230222
  Receipt Date: 20230302
  Transmission Date: 20230418
  Serious: No
  Sender: FDA-Public Use
  Company Number: US-GSKCCFUS-Case-01633277_AE-92199

PATIENT
  Sex: Female

DRUGS (1)
  1. ADVAIR HFA [Suspect]
     Active Substance: FLUTICASONE PROPIONATE\SALMETEROL XINAFOATE
     Indication: Product used for unknown indication
     Dosage: 2 PUFF(S), BID, 230MCG/21MCG
     Route: 055

REACTIONS (4)
  - Oropharyngeal pain [Unknown]
  - Throat irritation [Unknown]
  - Dysphonia [Not Recovered/Not Resolved]
  - Dysphagia [Not Recovered/Not Resolved]
